FAERS Safety Report 13417448 (Version 2)
Quarter: 2017Q2

REPORT INFORMATION
  Report Type: Spontaneous
  Country: US (occurrence: US)
  Receive Date: 20170406
  Receipt Date: 20170515
  Transmission Date: 20170830
  Serious: No
  Sender: FDA-Public Use
  Company Number: US-PFIZER INC-2017148332

PATIENT
  Sex: Female

DRUGS (2)
  1. LEVOXYL [Suspect]
     Active Substance: LEVOTHYROXINE SODIUM
     Dosage: 50 UG, UNK
  2. LEVOXYL [Suspect]
     Active Substance: LEVOTHYROXINE SODIUM
     Dosage: 125 UG, UNK

REACTIONS (3)
  - Reaction to drug excipients [Unknown]
  - Laboratory test abnormal [Unknown]
  - Underdose [Unknown]
